FAERS Safety Report 8487149-1 (Version None)
Quarter: 2012Q3

REPORT INFORMATION
  Report Type: 
  Country: None (occurrence: None)
  Receive Date: 20120704
  Receipt Date: 20120630
  Transmission Date: 20120928
  Serious: Yes (Other)
  Sender: FDA-Public Use
  Company Number: BR-ROCHE-1083408

PATIENT
  Age: 72 Year
  Sex: Male

DRUGS (8)
  1. HYDROCHLOROTHIAZIDE [Concomitant]
  2. DIGOXIN [Concomitant]
  3. LEVODOPA [Interacting]
     Indication: PARKINSON'S DISEASE
  4. SERTRALINE HYDROCHLORIDE [Interacting]
     Indication: PRODUCT USED FOR UNKNOWN INDICATION
  5. DOMPERIDONA [Interacting]
     Indication: PARKINSON'S DISEASE
  6. CLONAZEPAM [Suspect]
     Indication: PARKINSON'S DISEASE
  7. SELEGILINE [Interacting]
     Indication: PARKINSON'S DISEASE
  8. ENTACAPONE [Interacting]
     Indication: PARKINSON'S DISEASE

REACTIONS (1)
  - SEROTONIN SYNDROME [None]
